FAERS Safety Report 15469426 (Version 1)
Quarter: 2018Q4

REPORT INFORMATION
  Report Type: Spontaneous
  Country: AU (occurrence: AU)
  Receive Date: 20181005
  Receipt Date: 20181005
  Transmission Date: 20190205
  Serious: Yes (Death, Hospitalization, Other)
  Sender: FDA-Public Use
  Company Number: AU-ABBVIE-18K-163-2510165-00

PATIENT
  Sex: Male

DRUGS (1)
  1. HUMIRA [Suspect]
     Active Substance: ADALIMUMAB
     Indication: HIDRADENITIS
     Route: 058

REACTIONS (12)
  - Fall [Unknown]
  - Anaemia [Unknown]
  - Multiple sclerosis [Unknown]
  - Incontinence [Unknown]
  - Pilonidal cyst [Unknown]
  - Wound [Unknown]
  - Pain [Unknown]
  - Death [Fatal]
  - Osteomyelitis [Unknown]
  - Memory impairment [Unknown]
  - Thrombosis [Unknown]
  - Sepsis [Unknown]

NARRATIVE: CASE EVENT DATE: 201507
